FAERS Safety Report 4430069-X (Version None)
Quarter: 2004Q3

REPORT INFORMATION
  Report Type: 
  Country: None (occurrence: None)
  Receive Date: 20040820
  Receipt Date: 20040729
  Transmission Date: 20050211
  Serious: Yes (Other)
  Sender: FDA-Public Use
  Company Number: AU-ROCHE-376205

PATIENT
  Age: 100 Year
  Sex: Female

DRUGS (7)
  1. IBANDRONIC ACID [Suspect]
     Indication: OSTEOPOROSIS POSTMENOPAUSAL
     Dosage: ROUTE, DOSE AND FREQUENCY BLINDED.
     Route: 065
     Dates: end: 20040729
  2. CARTIA XT [Concomitant]
     Dates: start: 19970615
  3. PLAVIX [Concomitant]
     Dates: start: 20020615
  4. NEXIUM [Concomitant]
     Dates: start: 20030516
  5. XALATAN [Concomitant]
     Dates: start: 20001215
  6. ACETAMINOPHEN [Concomitant]
     Dates: start: 20030115
  7. PREDNISOLONE [Concomitant]
     Dates: start: 20030915

REACTIONS (2)
  - FEELING ABNORMAL [None]
  - POLYMYALGIA RHEUMATICA [None]
